FAERS Safety Report 14605730 (Version 1)
Quarter: 2018Q1

REPORT INFORMATION
  Report Type: Spontaneous
  Country: IT (occurrence: IT)
  Receive Date: 20180306
  Receipt Date: 20180306
  Transmission Date: 20180509
  Serious: Yes (Death, Hospitalization, Other)
  Sender: FDA-Public Use
  Company Number: IT-GILEAD-2018-0323612

PATIENT
  Age: 61 Year
  Sex: Male

DRUGS (5)
  1. CYCLOPHOSPHAMIDE W/FLUDARABINE/RITUXIMAB [Concomitant]
  2. IMMUNOGLOBULIN                     /00025201/ [Concomitant]
     Active Substance: HUMAN IMMUNOGLOBULIN G
  3. PREDNISOLONE. [Concomitant]
     Active Substance: PREDNISOLONE
  4. RITUXIMAB. [Concomitant]
     Active Substance: RITUXIMAB
  5. ZYDELIG [Suspect]
     Active Substance: IDELALISIB
     Indication: CHRONIC LYMPHOCYTIC LEUKAEMIA
     Route: 065

REACTIONS (2)
  - Sudden death [Fatal]
  - Chronic inflammatory demyelinating polyradiculoneuropathy [Fatal]
